FAERS Safety Report 5671120-9 (Version None)
Quarter: 2008Q1

REPORT INFORMATION
  Report Type: 
  Country: None (occurrence: None)
  Receive Date: 20080313
  Receipt Date: 20080227
  Transmission Date: 20080703
  Serious: Yes (Other)
  Sender: FDA-Public Use
  Company Number: US-1165271

PATIENT
  Sex: Female

DRUGS (1)
  1. SYSTANE EYE DROPS [Suspect]
     Dosage: OPHTHALMIC
     Route: 047

REACTIONS (5)
  - CORNEAL DISORDER [None]
  - ERYTHEMA [None]
  - ERYTHEMA OF EYELID [None]
  - EYE BURNS [None]
  - EYELID DISORDER [None]
